FAERS Safety Report 4315211-3 (Version None)
Quarter: 2004Q1

REPORT INFORMATION
  Report Type: 
  Country: None (occurrence: None)
  Receive Date: 20040310
  Receipt Date: 20040218
  Transmission Date: 20041129
  Serious: Yes (Other)
  Sender: FDA-Public Use
  Company Number: US_0402100962

PATIENT
  Age: 52 Year
  Sex: Male
  Weight: 80 kg

DRUGS (4)
  1. HUMALOG [Suspect]
     Dosage: 9 U/3 DAY
     Dates: start: 20010101
  2. INSULIN GLARGINE [Concomitant]
  3. ONDANSETRON HCL [Concomitant]
  4. LIDOCAINE VISCOUS (LIDOCAINE HYDROCHLORIDE) [Concomitant]

REACTIONS (5)
  - DEVICE FAILURE [None]
  - FEELING ABNORMAL [None]
  - HYPERTENSION [None]
  - OESOPHAGEAL CARCINOMA [None]
  - PHARMACEUTICAL PRODUCT COMPLAINT [None]
